FAERS Safety Report 17976582 (Version 5)
Quarter: 2020Q4

REPORT INFORMATION
  Report Type: Spontaneous
  Country: US (occurrence: US)
  Receive Date: 20200703
  Receipt Date: 20201014
  Transmission Date: 20210113
  Serious: Yes (Other)
  Sender: FDA-Public Use
  Company Number: US-LUPIN HEALTHCARE (UK) LIMITED-2020-02949

PATIENT
  Age: 61 Year
  Sex: Female
  Weight: 68 kg

DRUGS (9)
  1. ESTROGENS CONJUGATED [Concomitant]
     Active Substance: ESTROGENS, CONJUGATED
     Indication: PRODUCT USED FOR UNKNOWN INDICATION
     Dosage: UNK, PRN
     Route: 061
  2. POTASSIUM [Concomitant]
     Active Substance: POTASSIUM
     Indication: PRODUCT USED FOR UNKNOWN INDICATION
     Dosage: UNK
     Route: 048
  3. CALCIUM [Concomitant]
     Active Substance: CALCIUM
     Indication: PRODUCT USED FOR UNKNOWN INDICATION
     Dosage: UNK
     Route: 048
  4. ESTRADIOL. [Concomitant]
     Active Substance: ESTRADIOL
     Indication: PRODUCT USED FOR UNKNOWN INDICATION
     Dosage: 0.075 MILLIGRAM, QD
     Route: 048
  5. PROGESTERONE. [Concomitant]
     Active Substance: PROGESTERONE
     Indication: PRODUCT USED FOR UNKNOWN INDICATION
     Dosage: 100 MILLIGRAM, QD
     Route: 048
  6. LOPRESSOR [Concomitant]
     Active Substance: METOPROLOL TARTRATE
     Indication: BLOOD PRESSURE ABNORMAL
     Dosage: 50 MILLIGRAM, QD
     Route: 048
  7. ASPIRINE [Concomitant]
     Active Substance: ASPIRIN
     Indication: PRODUCT USED FOR UNKNOWN INDICATION
     Dosage: 81 MILLIGRAM, QD
     Route: 048
  8. OMEPRAZOLE. [Concomitant]
     Active Substance: OMEPRAZOLE
     Indication: PRODUCT USED FOR UNKNOWN INDICATION
     Dosage: 40 MILLIGRAM, AS NEEDED
     Route: 048
  9. SERTRALINE HYDROCHLORIDE TABLETS USP, 50 MG [Suspect]
     Active Substance: SERTRALINE HYDROCHLORIDE
     Indication: DEPRESSION
     Dosage: UNK UNK, QD
     Route: 048
     Dates: start: 20200525

REACTIONS (3)
  - Rash maculo-papular [Not Recovered/Not Resolved]
  - Pruritus [Not Recovered/Not Resolved]
  - Product substitution issue [Unknown]

NARRATIVE: CASE EVENT DATE: 20200525
